FAERS Safety Report 13747561 (Version 2)
Quarter: 2017Q4

REPORT INFORMATION
  Report Type: Report from Study
  Country: US (occurrence: US)
  Receive Date: 20170712
  Receipt Date: 20171012
  Transmission Date: 20180320
  Serious: No
  Sender: FDA-Public Use
  Company Number: GXBR2017US002061

PATIENT
  Sex: Female

DRUGS (2)
  1. OMNITROPE [Suspect]
     Active Substance: SOMATROPIN
     Indication: DWARFISM
     Dosage: UNK DF, UNK
     Route: 065
     Dates: start: 201502
  2. OMNITROPE [Suspect]
     Active Substance: SOMATROPIN
     Indication: GROWTH HORMONE DEFICIENCY

REACTIONS (2)
  - Injection site pain [Unknown]
  - Device malfunction [Unknown]
